FAERS Safety Report 10079813 (Version 1)
Quarter: 2014Q2

REPORT INFORMATION
  Report Type: Spontaneous
  Country: IT (occurrence: IT)
  Receive Date: 20140415
  Receipt Date: 20140415
  Transmission Date: 20141212
  Serious: Yes (Hospitalization)
  Sender: FDA-Public Use
  Company Number: IT-ACTAVIS-2013-25340

PATIENT
  Age: 53 Year
  Sex: Female

DRUGS (5)
  1. MIRTAZAPINE (UNKNOWN) [Suspect]
     Indication: INTENTIONAL SELF-INJURY
     Dosage: 1 DF, TOTAL
     Route: 048
     Dates: start: 20130730, end: 20130730
  2. QUETIAPINE (UNKNOWN) [Suspect]
     Indication: INTENTIONAL SELF-INJURY
     Dosage: 1 DF, TOTAL
     Route: 048
     Dates: start: 20130730, end: 20130730
  3. DELORAZEPAM [Suspect]
     Indication: INTENTIONAL SELF-INJURY
     Dosage: 1 DF, TOTAL
     Route: 048
     Dates: start: 20130730, end: 20130730
  4. SERTRALINE HYDROCHLORIDE (UNKNOWN) [Suspect]
     Indication: INTENTIONAL SELF-INJURY
     Dosage: 1 DF, TOTAL
     Route: 048
     Dates: start: 20130730, end: 20130730
  5. PREGABALIN (UNKNOWN) [Suspect]
     Indication: INTENTIONAL SELF-INJURY
     Dosage: 1 DF, TOTAL
     Route: 048
     Dates: start: 20130730, end: 20130730

REACTIONS (2)
  - Electrocardiogram QT prolonged [Recovering/Resolving]
  - Toxicity to various agents [Recovering/Resolving]
